FAERS Safety Report 6068135-8 (Version None)
Quarter: 2009Q1

REPORT INFORMATION
  Report Type: 
  Country: None (occurrence: None)
  Receive Date: 20090206
  Receipt Date: 20090127
  Transmission Date: 20090719
  Serious: Yes (Hospitalization)
  Sender: FDA-Public Use
  Company Number: FR-ASTRAZENECA-2009CG00289

PATIENT
  Age: 38 Year
  Sex: Female

DRUGS (3)
  1. ZOMIG [Suspect]
     Indication: MIGRAINE
     Route: 048
     Dates: end: 20090120
  2. ACETAMINOPHEN [Concomitant]
     Indication: MIGRAINE
  3. IBUPROFEN [Concomitant]
     Indication: MIGRAINE

REACTIONS (1)
  - CEREBROVASCULAR ACCIDENT [None]
